FAERS Safety Report 9023571 (Version 1)
Quarter: 2013Q1

REPORT INFORMATION
  Report Type: Spontaneous
  Country: US (occurrence: US)
  Receive Date: 20130121
  Receipt Date: 20130121
  Transmission Date: 20140127
  Serious: No
  Sender: FDA-Public Use
  Company Number: PHEH2013US001666

PATIENT
  Sex: Male
  Weight: 120.18 kg

DRUGS (8)
  1. TASIGNA [Suspect]
     Indication: CHRONIC MYELOID LEUKAEMIA
     Dosage: 300 MG, BID
     Route: 048
  2. CARDIZEM [Concomitant]
     Dosage: 30 MG,
  3. BENAZEPRIL [Concomitant]
     Dosage: 5 MG,
  4. SOTALOL [Concomitant]
     Dosage: 120 MG,
  5. CATAPRES                                /USA/ [Concomitant]
     Dosage: 0.1 MG,
  6. PRADAXA [Concomitant]
     Dosage: 75 MG,
  7. MULTI-VIT [Concomitant]
  8. VOLTAREN ^NOVARTIS^ [Concomitant]
     Dosage: 75 MG

REACTIONS (3)
  - Fatigue [Unknown]
  - Nausea [Unknown]
  - Diarrhoea [Recovered/Resolved]
